FAERS Safety Report 10185317 (Version 2)
Quarter: 2014Q2

REPORT INFORMATION
  Report Type: Spontaneous
  Country: US (occurrence: US)
  Receive Date: 20140521
  Receipt Date: 20140609
  Transmission Date: 20141212
  Serious: No
  Sender: FDA-Public Use
  Company Number: US-PFIZER INC-2014136092

PATIENT
  Age: 44 Year
  Sex: Male
  Weight: 77.1 kg

DRUGS (2)
  1. GABAPENTIN [Suspect]
     Dosage: UNK
  2. XIFAXAN [Concomitant]
     Dosage: 500 MG, 2X/DAY
     Dates: start: 20131211

REACTIONS (1)
  - Hallucination [Unknown]
